FAERS Safety Report 21542670 (Version 1)
Quarter: 2022Q4

REPORT INFORMATION
  Report Type: Spontaneous
  Country: US (occurrence: US)
  Receive Date: 20221102
  Receipt Date: 20221102
  Transmission Date: 20230112
  Serious: No
  Sender: FDA-Public Use
  Company Number: US-PFIZER INC-202201265273

PATIENT
  Age: 61 Year
  Sex: Female

DRUGS (3)
  1. PAXLOVID [Suspect]
     Active Substance: NIRMATRELVIR\RITONAVIR
     Indication: COVID-19 treatment
     Dosage: UNK
     Dates: start: 20221014, end: 20221018
  2. ESTRADIOL [Concomitant]
     Active Substance: ESTRADIOL
     Dosage: UNK
     Dates: start: 20150201
  3. PROGESTERONE [Concomitant]
     Active Substance: PROGESTERONE
     Dosage: UNK
     Dates: start: 20150201

REACTIONS (2)
  - Disease recurrence [Not Recovered/Not Resolved]
  - COVID-19 [Not Recovered/Not Resolved]

NARRATIVE: CASE EVENT DATE: 20221024
